FAERS Safety Report 17824676 (Version 8)
Quarter: 2020Q4

REPORT INFORMATION
  Report Type: Spontaneous
  Country: ES (occurrence: ES)
  Receive Date: 20200526
  Receipt Date: 20201209
  Transmission Date: 20210113
  Serious: Yes (Hospitalization, Other)
  Sender: FDA-Public Use
  Company Number: ES-009507513-2005ESP007596

PATIENT
  Age: 82 Year
  Sex: Male

DRUGS (2)
  1. FIDAXOMICIN [Suspect]
     Active Substance: FIDAXOMICIN
     Indication: CLOSTRIDIUM DIFFICILE INFECTION
     Dosage: 200 MILLIGRAM, Q12H
     Route: 048
     Dates: start: 20191008, end: 20191028
  2. ZINPLAVA [Suspect]
     Active Substance: BEZLOTOXUMAB
     Indication: CLOSTRIDIUM DIFFICILE INFECTION
     Dosage: 200 (UNKNOWN UNIT), UNKNOWN FREQ.
     Route: 065
     Dates: start: 20191105

REACTIONS (6)
  - Incorrect product administration duration [Unknown]
  - Clostridium difficile infection [Recovered/Resolved]
  - Treatment failure [Unknown]
  - Clostridium difficile infection [Unknown]
  - Clostridium difficile infection [Recovered/Resolved]
  - Drug ineffective [Unknown]

NARRATIVE: CASE EVENT DATE: 20191008
